FAERS Safety Report 4611061-9 (Version None)
Quarter: 2005Q2

REPORT INFORMATION
  Report Type: 
  Country: None (occurrence: None)
  Receive Date: 20050314
  Receipt Date: 20041221
  Transmission Date: 20051028
  Serious: Yes (Hospitalization)
  Sender: FDA-Public Use
  Company Number: USA041286745

PATIENT
  Age: 84 Year
  Sex: Female

DRUGS (1)
  1. GEMZAR [Suspect]
     Indication: LUNG NEOPLASM MALIGNANT
     Dosage: 800 MG
     Dates: start: 20040928

REACTIONS (2)
  - ASTHENIA [None]
  - BODY TEMPERATURE INCREASED [None]
